FAERS Safety Report 8236392-5 (Version None)
Quarter: 2012Q1

REPORT INFORMATION
  Report Type: 
  Country: None (occurrence: None)
  Receive Date: 20120327
  Receipt Date: 20120322
  Transmission Date: 20120608
  Serious: No
  Sender: FDA-Public Use
  Company Number: US-PFIZER INC-2012043398

PATIENT
  Sex: Female

DRUGS (1)
  1. PREMARIN [Suspect]
     Indication: OESTROGEN REPLACEMENT THERAPY
     Dosage: UNK
     Dates: start: 20100101

REACTIONS (6)
  - UNDERWEIGHT [None]
  - FEELING ABNORMAL [None]
  - STRESS [None]
  - ANXIETY [None]
  - OBSESSIVE-COMPULSIVE DISORDER [None]
  - MEMORY IMPAIRMENT [None]
